FAERS Safety Report 5578644-3 (Version None)
Quarter: 2007Q4

REPORT INFORMATION
  Report Type: 
  Country: None (occurrence: None)
  Receive Date: 20071227
  Receipt Date: 20071227
  Transmission Date: 20080405
  Serious: Yes (Hospitalization)
  Sender: FDA-Public Use
  Company Number: None

PATIENT
  Age: 74 Year
  Sex: Female
  Weight: 89 kg

DRUGS (10)
  1. COUMADIN [Suspect]
     Indication: ATRIAL FIBRILLATION
     Dosage: COUMADIN 3MG ONCE DAILY ORAL
     Route: 048
     Dates: start: 20040101
  2. PRIMIDONE [Concomitant]
  3. LASIX [Concomitant]
  4. CELEXA [Concomitant]
  5. WELDOL [Concomitant]
  6. REGLAN [Concomitant]
  7. SYNTHROID [Concomitant]
  8. PREMPRO [Concomitant]
  9. LANOXIN [Concomitant]
  10. LISINOPRIL [Concomitant]

REACTIONS (5)
  - FALL [None]
  - HEAD INJURY [None]
  - INTERNATIONAL NORMALISED RATIO DECREASED [None]
  - MUSCULAR WEAKNESS [None]
  - SUBDURAL HAEMATOMA [None]
